FAERS Safety Report 5030996-9 (Version None)
Quarter: 2006Q2

REPORT INFORMATION
  Report Type: 
  Country: None (occurrence: None)
  Receive Date: 20060621
  Receipt Date: 20060321
  Transmission Date: 20061013
  Serious: No
  Sender: FDA-Public Use
  Company Number: US-GLAXOSMITHKLINE-A0598390A

PATIENT
  Age: 61 Year
  Sex: Female

DRUGS (6)
  1. FLOVENT [Suspect]
     Indication: ASTHMA
     Dosage: 44MCG TWICE PER DAY
     Route: 055
  2. DILANTIN [Concomitant]
  3. PHENOBARB [Concomitant]
  4. SINGULAIR [Concomitant]
  5. ZYRTEC [Concomitant]
  6. SYNTHROID [Concomitant]

REACTIONS (2)
  - GRANULOMA ANNULARE [None]
  - RASH PAPULAR [None]
